FAERS Safety Report 24845923 (Version 5)
Quarter: 2025Q3

REPORT INFORMATION
  Report Type: Report from Study
  Country: JP (occurrence: JP)
  Receive Date: 20250115
  Receipt Date: 20250813
  Transmission Date: 20251021
  Serious: Yes (Hospitalization)
  Sender: ALEXION PHARMACEUTICALS
  Company Number: JP-ALXN-A202309867

PATIENT
  Age: 40 Year
  Sex: Female
  Weight: 49.6 kg

DRUGS (15)
  1. ULTOMIRIS [Suspect]
     Active Substance: RAVULIZUMAB-CWVZ
     Indication: Neuromyelitis optica spectrum disorder
     Dates: start: 20230707, end: 20230707
  2. ULTOMIRIS [Suspect]
     Active Substance: RAVULIZUMAB-CWVZ
  3. SOLIRIS [Suspect]
     Active Substance: ECULIZUMAB
     Indication: Neuromyelitis optica spectrum disorder
     Dosage: 900 MILLIGRAM, QW
     Dates: start: 20230414, end: 20230512
  4. SOLIRIS [Suspect]
     Active Substance: ECULIZUMAB
     Dosage: 1200 MILLIGRAM, Q2W
     Dates: start: 20230519, end: 20230623
  5. SOLIRIS [Suspect]
     Active Substance: ECULIZUMAB
     Dosage: 1200 MILLIGRAM, Q2W
     Dates: start: 20230922
  6. Rinderon [Concomitant]
     Indication: Anaphylactic reaction
     Dosage: 100 MILLIGRAM, TIW
     Route: 065
     Dates: start: 20181001, end: 20181013
  7. Rinderon [Concomitant]
     Indication: Neuromyelitis optica spectrum disorder
     Dosage: 100 MILLIGRAM, TIW
     Route: 065
     Dates: start: 20191029, end: 20191109
  8. Rinderon [Concomitant]
     Dosage: 0.5 MILLIGRAM, QD
     Dates: start: 2006, end: 20230310
  9. Rinderon [Concomitant]
     Dosage: 100 MILLIGRAM, TIW
     Route: 065
     Dates: start: 20230222, end: 20230301
  10. Rinderon [Concomitant]
     Dosage: 1 MILLIGRAM, QD
     Dates: start: 20230311, end: 20230323
  11. Rinderon [Concomitant]
     Dosage: 0.5 MILLIGRAM, QD
     Dates: start: 20230324
  12. Rinderon [Concomitant]
     Dates: start: 20230721, end: 20230721
  13. Rinderon [Concomitant]
     Dosage: 1 MILLIGRAM, QD
     Dates: end: 20231124
  14. PROGRAF [Concomitant]
     Active Substance: TACROLIMUS
     Indication: Neuromyelitis optica spectrum disorder
     Dosage: 3 MILLIGRAM, QD
     Dates: start: 2006, end: 20231019
  15. PROGRAF [Concomitant]
     Active Substance: TACROLIMUS
     Dosage: 1.5 MILLIGRAM, QD
     Dates: end: 20231020

REACTIONS (7)
  - Pallor [Recovered/Resolved]
  - Hyperhidrosis [Recovered/Resolved]
  - Cold sweat [Recovered/Resolved]
  - Abdominal pain [Recovered/Resolved]
  - Rash [Recovered/Resolved]
  - Nausea [Recovered/Resolved]
  - Drug hypersensitivity [Recovered/Resolved]

NARRATIVE: CASE EVENT DATE: 20230721
